FAERS Safety Report 6258260-0 (Version None)
Quarter: 2009Q3

REPORT INFORMATION
  Report Type: 
  Country: None (occurrence: None)
  Receive Date: 20090707
  Receipt Date: 20090629
  Transmission Date: 20100115
  Serious: Yes (Hospitalization)
  Sender: FDA-Public Use
  Company Number: US-BAYER-200925038NA

PATIENT
  Age: 16 Year
  Sex: Female

DRUGS (1)
  1. MIRENA [Suspect]
     Indication: CONTRACEPTION
     Route: 015
     Dates: start: 20090402, end: 20090505

REACTIONS (4)
  - BACK PAIN [None]
  - CEREBRAL ARTERY EMBOLISM [None]
  - HEADACHE [None]
  - PULMONARY THROMBOSIS [None]
